FAERS Safety Report 15883443 (Version 1)
Quarter: 2019Q1

REPORT INFORMATION
  Report Type: Report from Study
  Country: IT (occurrence: IT)
  Receive Date: 20190129
  Receipt Date: 20190129
  Transmission Date: 20190417
  Serious: Yes (Hospitalization)
  Sender: FDA-Public Use
  Company Number: IT-ACCORD-103835

PATIENT
  Age: 77 Year
  Sex: Female

DRUGS (3)
  1. FLUOROURACILE AHCL [Suspect]
     Active Substance: FLUOROURACIL
     Indication: COLON CANCER
     Dates: start: 20161108, end: 20180314
  2. ERBITUX [Suspect]
     Active Substance: CETUXIMAB
     Indication: COLON CANCER
     Dates: start: 20161108, end: 20180320
  3. IRINOTECAN ACCORD [Suspect]
     Active Substance: IRINOTECAN
     Indication: COLON CANCER
     Dates: start: 20161108, end: 20180313

REACTIONS (3)
  - Atrial flutter [Recovered/Resolved]
  - Diarrhoea [Recovered/Resolved]
  - Hypokalaemia [Recovered/Resolved]

NARRATIVE: CASE EVENT DATE: 20180323
